FAERS Safety Report 6298509-1 (Version None)
Quarter: 2009Q3

REPORT INFORMATION
  Report Type: 
  Country: None (occurrence: None)
  Receive Date: 20090805
  Receipt Date: 20090729
  Transmission Date: 20100115
  Serious: Yes (Other)
  Sender: FDA-Public Use
  Company Number: FR-MERCK-0907FRA00104

PATIENT
  Age: 54 Year
  Sex: Female

DRUGS (5)
  1. ISENTRESS [Suspect]
     Indication: HIV INFECTION
     Route: 048
     Dates: start: 20090520, end: 20090608
  2. PRAVASTATIN SODIUM [Suspect]
     Indication: DYSLIPIDAEMIA
     Route: 048
     Dates: start: 20090520, end: 20090608
  3. ATAZANAVIR SULFATE [Concomitant]
     Route: 048
  4. RITONAVIR [Concomitant]
     Indication: HIV INFECTION
     Route: 048
  5. LAMIVUDINE [Concomitant]
     Route: 048

REACTIONS (2)
  - ALOPECIA [None]
  - MUSCLE DISORDER [None]
